FAERS Safety Report 4946780-8 (Version None)
Quarter: 2006Q1

REPORT INFORMATION
  Report Type: 
  Country: None (occurrence: None)
  Receive Date: 20060317
  Receipt Date: 20060303
  Transmission Date: 20060701
  Serious: Yes (Other)
  Sender: FDA-Public Use
  Company Number: PHBS2006NL03361

PATIENT
  Age: 78 Year
  Sex: Female

DRUGS (2)
  1. FORADIL [Suspect]
     Indication: EMPHYSEMA
  2. ATROVENT [Concomitant]

REACTIONS (5)
  - DIZZINESS [None]
  - DYSPNOEA [None]
  - SENSATION OF HEAVINESS [None]
  - TREMOR [None]
  - VAGINAL HAEMORRHAGE [None]
